FAERS Safety Report 7880152-1 (Version None)
Quarter: 2011Q4

REPORT INFORMATION
  Report Type: 
  Country: None (occurrence: None)
  Receive Date: 20111101
  Receipt Date: 20111028
  Transmission Date: 20120403
  Serious: Yes (Other)
  Sender: FDA-Public Use
  Company Number: SE-PFIZER INC-2011240673

PATIENT
  Age: 56 Year
  Sex: Female
  Weight: 72 kg

DRUGS (4)
  1. ESTRADERM [Concomitant]
     Dosage: 50 UG, 2X/WEEK
     Route: 062
     Dates: start: 20110601
  2. PULMICORT [Concomitant]
     Dosage: 200 UG, 2X/DAY
     Dates: start: 20110601
  3. VARENICLINE TARTRATE [Suspect]
     Indication: SMOKING CESSATION THERAPY
     Dosage: 1 MG, 2X/DAY
     Route: 048
     Dates: start: 20110831
  4. HERBAL NOS/VITAMINS NOS [Concomitant]
     Dosage: UNK
     Dates: start: 20090101

REACTIONS (3)
  - FEELING ABNORMAL [None]
  - LOSS OF CONSCIOUSNESS [None]
  - AMNESIA [None]
